FAERS Safety Report 5214139-4 (Version None)
Quarter: 2007Q1

REPORT INFORMATION
  Report Type: 
  Country: None (occurrence: None)
  Receive Date: 20070122
  Receipt Date: 20070111
  Transmission Date: 20070707
  Serious: Yes (Other)
  Sender: FDA-Public Use
  Company Number: PHEH2006US15130

PATIENT
  Age: 39 Year
  Sex: Female

DRUGS (3)
  1. ZELNORM [Suspect]
     Indication: IRRITABLE BOWEL SYNDROME
     Dosage: 6 MG, BID
     Route: 048
     Dates: start: 20060824, end: 20061104
  2. ESTRATEST [Concomitant]
     Indication: HORMONE REPLACEMENT THERAPY
  3. HORMONES [Concomitant]
     Indication: HORMONE REPLACEMENT THERAPY
     Dates: start: 19950101

REACTIONS (12)
  - AMNESIA [None]
  - ASTHENIA [None]
  - BLOOD DISORDER [None]
  - CONVULSION [None]
  - DIZZINESS [None]
  - DYSARTHRIA [None]
  - ELECTROENCEPHALOGRAM ABNORMAL [None]
  - FACIAL PALSY [None]
  - HEADACHE [None]
  - VERTIGO [None]
  - VISION BLURRED [None]
  - VOMITING [None]
